FAERS Safety Report 19687869 (Version 2)
Quarter: 2021Q3

REPORT INFORMATION
  Report Type: Report from Study
  Country: None (occurrence: US)
  Receive Date: 20210812
  Receipt Date: 20210819
  Transmission Date: 20211014
  Serious: No
  Sender: FDA-Public Use
  Company Number: US-ABBVIE-21K-163-4031101-00

PATIENT
  Sex: Male
  Weight: 113.5 kg

DRUGS (12)
  1. METFORMIN [Concomitant]
     Active Substance: METFORMIN HYDROCHLORIDE
     Indication: TYPE 2 DIABETES MELLITUS
  2. LISINOPRIL. [Concomitant]
     Active Substance: LISINOPRIL
     Indication: HYPERTENSION
  3. OZURDEX [Suspect]
     Active Substance: DEXAMETHASONE
     Route: 050
     Dates: start: 202107
  4. MODERNA COVID?19 VACCINE [Concomitant]
     Active Substance: CX-024414
     Route: 030
     Dates: start: 20210326, end: 20210326
  5. DORZOLAMIDE AND TIMOLOL [Concomitant]
     Active Substance: DORZOLAMIDE\TIMOLOL
     Indication: INTRAOCULAR PRESSURE TEST
     Route: 047
  6. HUMIRA [Suspect]
     Active Substance: ADALIMUMAB
     Indication: UVEITIS
     Dosage: CITRATE FREE
     Route: 058
     Dates: start: 2019
  7. MODERNA COVID?19 VACCINE [Concomitant]
     Active Substance: CX-024414
     Indication: COVID-19 IMMUNISATION
     Route: 030
     Dates: start: 20210226, end: 20210226
  8. BRIMONIDINE [Concomitant]
     Active Substance: BRIMONIDINE TARTRATE
     Indication: INTRAOCULAR PRESSURE TEST
     Route: 047
  9. CLARITIN [CLARITHROMYCIN] [Concomitant]
     Active Substance: CLARITHROMYCIN
     Indication: HYPERSENSITIVITY
  10. OZURDEX [Suspect]
     Active Substance: DEXAMETHASONE
     Indication: MACULAR OEDEMA
     Route: 050
     Dates: start: 202005
  11. OZURDEX [Suspect]
     Active Substance: DEXAMETHASONE
     Route: 050
  12. ATORVASTATIN [Concomitant]
     Active Substance: ATORVASTATIN
     Indication: BLOOD CHOLESTEROL INCREASED

REACTIONS (5)
  - Wrong technique in product usage process [Recovered/Resolved]
  - Intraocular pressure increased [Not Recovered/Not Resolved]
  - Glaucoma [Not Recovered/Not Resolved]
  - Device issue [Recovered/Resolved]
  - Visual impairment [Unknown]

NARRATIVE: CASE EVENT DATE: 2020
